FAERS Safety Report 12649154 (Version 2)
Quarter: 2016Q3

REPORT INFORMATION
  Report Type: Report from Study
  Country: US (occurrence: US)
  Receive Date: 20160812
  Receipt Date: 20160830
  Transmission Date: 20161109
  Serious: Yes (Death, Hospitalization)
  Sender: FDA-Public Use
  Company Number: US-PFIZER INC-2016374905

PATIENT
  Age: 24 Year
  Sex: Male
  Weight: 43.99 kg

DRUGS (7)
  1. SCOPOLAMINE /00008701/ [Concomitant]
     Active Substance: SCOPOLAMINE
     Indication: MOTION SICKNESS
     Dosage: START DATE PRIOR STUDY
     Route: 048
  2. KEYTRUDA [Suspect]
     Active Substance: PEMBROLIZUMAB
     Indication: ALVEOLAR SOFT PART SARCOMA
     Dosage: 200 MG, EVERY 3 WEEKS (INFUSION)
     Route: 042
     Dates: start: 20160701, end: 20160722
  3. PHENERGAN [Concomitant]
     Active Substance: PROMETHAZINE HYDROCHLORIDE
     Indication: COUGH
     Dosage: START DATE PRIOR STUDY
     Route: 048
  4. CARVEDILOL. [Concomitant]
     Active Substance: CARVEDILOL
     Indication: TACHYCARDIA
     Dosage: START DATE PRIOR STUDY
     Route: 048
  5. LEVOTHYROXINE. [Concomitant]
     Active Substance: LEVOTHYROXINE
     Indication: HYPOTHYROIDISM
     Dosage: UNK
     Route: 048
     Dates: start: 20160722
  6. AXITINIB [Suspect]
     Active Substance: AXITINIB
     Indication: ALVEOLAR SOFT PART SARCOMA
     Dosage: 5 MG, BID
     Route: 048
     Dates: start: 20160621, end: 20160722
  7. DILAUDID [Concomitant]
     Active Substance: HYDROMORPHONE HYDROCHLORIDE
     Indication: PAIN
     Dosage: START DATE PRIOR STUDY
     Route: 048

REACTIONS (10)
  - Malnutrition [Not Recovered/Not Resolved]
  - Mental status changes [Not Recovered/Not Resolved]
  - Disease progression [Fatal]
  - Pneumonia aspiration [Fatal]
  - Hyperammonaemia [Recovered/Resolved]
  - Acute kidney injury [Recovered/Resolved with Sequelae]
  - Alveolar soft part sarcoma [Fatal]
  - Dehydration [Recovered/Resolved with Sequelae]
  - Transaminases increased [Fatal]
  - Cachexia [Not Recovered/Not Resolved]

NARRATIVE: CASE EVENT DATE: 20160724
